FAERS Safety Report 5365505-8 (Version None)
Quarter: 2007Q2

REPORT INFORMATION
  Report Type: 
  Country: None (occurrence: None)
  Receive Date: 20070621
  Receipt Date: 20070615
  Transmission Date: 20071010
  Serious: Yes (Life-Threatening, Other)
  Sender: FDA-Public Use
  Company Number: A0640986A

PATIENT
  Age: 10 Year
  Sex: Male

DRUGS (8)
  1. AVANDIA [Suspect]
     Indication: DRUG DISPENSING ERROR
     Dosage: 4MG PER DAY
     Route: 048
     Dates: start: 20061212, end: 20061201
  2. ATACAND [Suspect]
     Indication: DRUG USE FOR UNKNOWN INDICATION
     Route: 065
  3. CONCERTA [Concomitant]
  4. PERIACTIN [Concomitant]
  5. DETROL LA [Concomitant]
  6. LORATADINE [Concomitant]
  7. ENALAPRIL [Concomitant]
  8. DDAVP (NEEDS NO REFRIGERATION) [Concomitant]

REACTIONS (13)
  - ANAEMIA [None]
  - BLOOD GLUCOSE DECREASED [None]
  - BLOOD GLUCOSE FLUCTUATION [None]
  - BLOOD INSULIN INCREASED [None]
  - DRUG DISPENSING ERROR [None]
  - HAEMATOCRIT DECREASED [None]
  - HUNGER [None]
  - HYPERHIDROSIS [None]
  - IRRITABILITY [None]
  - RED BLOOD CELL COUNT DECREASED [None]
  - STARING [None]
  - VISUAL ACUITY REDUCED [None]
  - WRONG DRUG ADMINISTERED [None]
